FAERS Safety Report 6297340-0 (Version None)
Quarter: 2009Q3

REPORT INFORMATION
  Report Type: 
  Country: None (occurrence: None)
  Receive Date: 20090804
  Receipt Date: 20090804
  Transmission Date: 20100115
  Serious: No
  Sender: FDA-Public Use
  Company Number: None

PATIENT
  Sex: Female
  Weight: 52.1637 kg

DRUGS (1)
  1. CYTOMEL [Suspect]
     Dosage: 1/DAILY
     Dates: start: 20080101, end: 20090701

REACTIONS (3)
  - PRURITUS [None]
  - SWOLLEN TONGUE [None]
  - URTICARIA [None]
